FAERS Safety Report 4554659-9 (Version None)
Quarter: 2004Q4

REPORT INFORMATION
  Report Type: 
  Country: None (occurrence: None)
  Receive Date: 20041227
  Receipt Date: 20040921
  Transmission Date: 20050328
  Serious: No
  Sender: FDA-Public Use
  Company Number: US092255

PATIENT
  Age: 35 Year
  Sex: Male

DRUGS (4)
  1. SENSIPAR [Suspect]
     Indication: HYPERPARATHYROIDISM SECONDARY
     Dosage: 30 MG, 1 IN 1 DAYS, PO
     Route: 048
     Dates: start: 20040601
  2. EPOGEN [Concomitant]
  3. SEVELAMER HCL [Concomitant]
  4. PARICALCITOL [Concomitant]

REACTIONS (2)
  - DIARRHOEA [None]
  - NAUSEA [None]
